FAERS Safety Report 17716629 (Version 2)
Quarter: 2020Q2

REPORT INFORMATION
  Report Type: Report from Study
  Country: CN (occurrence: CN)
  Receive Date: 20200428
  Receipt Date: 20200529
  Transmission Date: 20200714
  Serious: Yes (Other)
  Sender: FDA-Public Use
  Company Number: CN-TEVA-2020-CN-1227791

PATIENT
  Age: 67 Year
  Sex: Female
  Weight: 60 kg

DRUGS (5)
  1. SIFROL/BOEHRINGER INGELHEIM INTERNATIONAL GMBH [Concomitant]
     Indication: PARKINSON^S DISEASE
     Dosage: .75 MILLIGRAM DAILY;
     Route: 048
     Dates: start: 201601
  2. ENEMA/GLYCERIN ENEMA [Concomitant]
     Indication: CONSTIPATION
     Route: 048
     Dates: start: 201711
  3. SU LAI LE/BISOPROLOL FUMARATE TABLETS [Concomitant]
     Indication: MYOCARDIAL BRIDGING
     Dosage: 5 MILLIGRAM DAILY;
     Route: 048
     Dates: start: 20150102
  4. AZILECT [Suspect]
     Active Substance: RASAGILINE MESYLATE
     Indication: PARKINSON^S DISEASE
     Dosage: 1 MILLIGRAM DAILY;
     Route: 048
     Dates: start: 20191123, end: 20200412
  5. MADOPAR/LEVODOPA AND BENSERAZIDE HYDROCHLORIDE TABLETS [Concomitant]
     Indication: PARKINSON^S DISEASE
     Dosage: 750 MILLIGRAM DAILY;
     Route: 048
     Dates: start: 201503

REACTIONS (3)
  - Dizziness [Recovered/Resolved]
  - Malaise [Recovered/Resolved]
  - Amaurosis [Recovered/Resolved]

NARRATIVE: CASE EVENT DATE: 20200326
